FAERS Safety Report 5293503-1 (Version None)
Quarter: 2007Q2

REPORT INFORMATION
  Report Type: 
  Country: None (occurrence: None)
  Receive Date: 20070411
  Receipt Date: 20070406
  Transmission Date: 20071010
  Serious: Yes (Other)
  Sender: FDA-Public Use
  Company Number: US-GLAXOSMITHKLINE-A0646191A

PATIENT
  Sex: Male

DRUGS (9)
  1. IMITREX [Suspect]
     Indication: MIGRAINE
     Dosage: 100MG AS REQUIRED
     Route: 048
  2. IMITREX [Suspect]
     Dosage: 1SPR SINGLE DOSE
     Route: 045
     Dates: start: 20060101, end: 20060101
  3. ATENOLOL [Concomitant]
  4. HYDROCHLOROTHIAZIDE [Concomitant]
  5. NEXIUM [Concomitant]
  6. PRAVACHOL [Concomitant]
  7. TRICOR [Concomitant]
  8. CHOLESTYRAMINE [Concomitant]
  9. B-12 [Concomitant]

REACTIONS (3)
  - DRUG INEFFECTIVE [None]
  - DYSLEXIA [None]
  - HANGOVER [None]
